FAERS Safety Report 18800744 (Version 11)
Quarter: 2021Q4

REPORT INFORMATION
  Report Type: Spontaneous
  Country: DE (occurrence: DE)
  Receive Date: 20210128
  Receipt Date: 20211014
  Transmission Date: 20220303
  Serious: Yes (Life-Threatening, Hospitalization, Other)
  Sender: FDA-Public Use
  Company Number: DE-002147023-NVSC2020DE226417

PATIENT
  Sex: Female
  Weight: 78.6 kg

DRUGS (28)
  1. VALSARTAN [Suspect]
     Active Substance: VALSARTAN
     Indication: Hypertension
     Dosage: 160 MG, QD
     Route: 065
     Dates: start: 201111
  2. VALSARTAN [Suspect]
     Active Substance: VALSARTAN
     Dosage: 160 MILLIGRAM
     Route: 065
     Dates: start: 201409, end: 201501
  3. VALSARTAN [Suspect]
     Active Substance: VALSARTAN
     Dosage: 160 MG, QD
     Route: 065
     Dates: start: 20140801, end: 20190930
  4. VALSARTAN [Suspect]
     Active Substance: VALSARTAN
     Dosage: 160 MG, QD
     Route: 065
     Dates: start: 20141015, end: 2018
  5. VALSARTAN [Suspect]
     Active Substance: VALSARTAN
     Dosage: 160 MILLIGRAM
     Route: 065
     Dates: start: 201611, end: 201702
  6. VALSARTAN [Suspect]
     Active Substance: VALSARTAN
     Dosage: 160 MG, QD
     Route: 065
     Dates: start: 201805, end: 201807
  7. VALSARTAN [Suspect]
     Active Substance: VALSARTAN
     Dosage: 160 MILLIGRAM
     Route: 065
     Dates: start: 201708, end: 201803
  8. VALSARTAN [Suspect]
     Active Substance: VALSARTAN
     Indication: Hypertension
     Dosage: 160 MILLIGRAM, QD
     Route: 065
     Dates: start: 20140801, end: 20190930
  9. VALSARTAN [Suspect]
     Active Substance: VALSARTAN
     Dosage: UNK
     Route: 065
     Dates: start: 20140801, end: 20190930
  10. VALSARTAN [Suspect]
     Active Substance: VALSARTAN
     Dosage: 160 MILLIGRAM, QD
     Route: 065
     Dates: start: 201409, end: 201501
  11. VALSARTAN [Suspect]
     Active Substance: VALSARTAN
     Dosage: 160 MG
     Route: 065
     Dates: start: 201611, end: 201702
  12. VALSARTAN [Suspect]
     Active Substance: VALSARTAN
     Dosage: 160 MG
     Route: 065
     Dates: start: 201708, end: 201803
  13. VALSARTAN [Suspect]
     Active Substance: VALSARTAN
     Dosage: 160 MG
     Route: 065
     Dates: start: 201805, end: 201807
  14. VALSARTAN [Suspect]
     Active Substance: VALSARTAN
     Dosage: 160 MILLIGRAM
     Route: 065
     Dates: start: 201805, end: 20190930
  15. VALSARTAN [Suspect]
     Active Substance: VALSARTAN
     Dosage: 160 MILLIGRAM
     Route: 065
     Dates: start: 201409, end: 201501
  16. SANDOSTATIN [Suspect]
     Active Substance: OCTREOTIDE ACETATE
     Indication: Product used for unknown indication
     Dosage: UNK
     Route: 065
  17. SELENIUM [Concomitant]
     Active Substance: SELENIUM
     Indication: Product used for unknown indication
     Dosage: 300 MICROGRAM, QOD (300 UG, QOD)
     Route: 065
  18. VALSARTAN [Concomitant]
     Active Substance: VALSARTAN
     Indication: Hypertension
     Dosage: 16 MG, QD (ONCE DAILY IN MORNING)
     Route: 065
  19. VALSARTAN [Concomitant]
     Active Substance: VALSARTAN
     Dosage: 16 MG, QD (ONCE DAILY IN MORNING)
     Route: 065
     Dates: start: 20200217, end: 20200221
  20. VALSARTAN [Concomitant]
     Active Substance: VALSARTAN
     Dosage: 160 MG, QD (ONCE DAILY IN MORNING)
  21. BIOLECTRA [Concomitant]
     Indication: Product used for unknown indication
     Dosage: UNK
     Route: 065
  22. LERCANIDIPINE [Concomitant]
     Active Substance: LERCANIDIPINE
     Indication: Product used for unknown indication
     Dosage: 20 MG (HALF OF A DOSE ONCE DAILY IN THE MORNING)
     Route: 065
     Dates: start: 20200217, end: 20200221
  23. VITAMIN D NOS [Concomitant]
     Active Substance: VITAMIN D NOS
     Indication: Product used for unknown indication
     Dosage: UNK
     Route: 065
  24. IBUPROFEN [Concomitant]
     Active Substance: IBUPROFEN
     Indication: Product used for unknown indication
     Dosage: 800 MILLIGRAM, QD (400 MG, BID (NOON AND EVENING)
     Route: 065
     Dates: start: 20200218, end: 20200218
  25. IBUPROFEN [Concomitant]
     Active Substance: IBUPROFEN
     Dosage: 1200 MILLIGRAM, QD (400 MG, TID (MORNING/NOON/ EVENING))
     Route: 065
     Dates: start: 20200219, end: 20200219
  26. IBUPROFEN [Concomitant]
     Active Substance: IBUPROFEN
     Dosage: 1600 MILLIGRAM, QD (400 MG, QID)
     Route: 065
     Dates: start: 20200220, end: 20200220
  27. IBUPROFEN [Concomitant]
     Active Substance: IBUPROFEN
     Dosage: 1200 MILLIGRAM, QD (400 MG, TID (MORNING/NOON/ EVENING)
     Route: 065
     Dates: start: 20200221, end: 20200221
  28. CHOLECALCIFEROL [Concomitant]
     Active Substance: CHOLECALCIFEROL
     Indication: Product used for unknown indication
     Dosage: 20000 INTERNATIONAL UNIT, QW(20000 IU, QW)
     Route: 065

REACTIONS (32)
  - Intraductal proliferative breast lesion [Not Recovered/Not Resolved]
  - Fat necrosis [Unknown]
  - Meningioma [Recovering/Resolving]
  - Hydrocephalus [Unknown]
  - Intracranial pressure increased [Unknown]
  - Breast cyst [Unknown]
  - Product contamination [Unknown]
  - Breast calcifications [Unknown]
  - Fibroadenoma of breast [Unknown]
  - Chronic obstructive pulmonary disease [Unknown]
  - Neoplasm [Unknown]
  - Balance disorder [Recovering/Resolving]
  - Spinal osteoarthritis [Recovering/Resolving]
  - Seroma [Unknown]
  - Breast enlargement [Unknown]
  - Hyperhidrosis [Unknown]
  - Decreased activity [Unknown]
  - Musculoskeletal discomfort [Recovering/Resolving]
  - Vomiting [Unknown]
  - Bronchitis chronic [Recovering/Resolving]
  - Occipital neuralgia [Unknown]
  - Insomnia [Recovering/Resolving]
  - Muscle tightness [Recovering/Resolving]
  - Disturbance in attention [Recovering/Resolving]
  - Application site discolouration [Unknown]
  - Diapedesis [Recovering/Resolving]
  - Nasal mucosal disorder [Unknown]
  - Emotional distress [Unknown]
  - Chronic sinusitis [Unknown]
  - Nervous system disorder [Unknown]
  - Cough [Unknown]
  - Dizziness [Unknown]

NARRATIVE: CASE EVENT DATE: 20160101
